FAERS Safety Report 18867761 (Version 3)
Quarter: 2022Q2

REPORT INFORMATION
  Report Type: Report from Study
  Country: FR (occurrence: FR)
  Receive Date: 20210209
  Receipt Date: 20220624
  Transmission Date: 20220721
  Serious: Yes (Congenital Anomaly, Other)
  Sender: FDA-Public Use
  Company Number: US-VIIV HEALTHCARE LIMITED-FR2021GSK033741

PATIENT

DRUGS (5)
  1. ZIDOVUDINE [Suspect]
     Active Substance: ZIDOVUDINE
     Indication: HIV infection
     Dosage: UNK
     Route: 064
     Dates: start: 20060426
  2. LAMIVUDINE [Suspect]
     Active Substance: LAMIVUDINE
     Indication: HIV infection
     Dosage: UNK
     Route: 064
     Dates: start: 20060426
  3. EFAVIRENZ [Suspect]
     Active Substance: EFAVIRENZ
     Indication: HIV infection
     Dosage: UNK
     Route: 064
     Dates: start: 20060426
  4. VIRACEPT [Suspect]
     Active Substance: NELFINAVIR MESYLATE
     Indication: HIV infection
     Dosage: UNK
     Route: 064
     Dates: start: 20060610, end: 20061018
  5. LOPINAVIR\RITONAVIR [Suspect]
     Active Substance: LOPINAVIR\RITONAVIR
     Indication: HIV infection
     Dosage: UNK
     Route: 064
     Dates: start: 20061018

REACTIONS (4)
  - Sickle cell disease [Unknown]
  - Spleen malformation [Unknown]
  - Polycystic liver disease [Unknown]
  - Foetal exposure during pregnancy [Unknown]
